FAERS Safety Report 7145928-7 (Version None)
Quarter: 2010Q4

REPORT INFORMATION
  Report Type: 
  Country: None (occurrence: None)
  Receive Date: 20101123
  Receipt Date: 20101111
  Transmission Date: 20110411
  Serious: Yes (Life-Threatening, Hospitalization)
  Sender: FDA-Public Use
  Company Number: WAES 1011USA01503

PATIENT
  Age: 66 Year
  Sex: Male
  Weight: 78.0187 kg

DRUGS (10)
  1. CAP VORINOSTAT UNK [Suspect]
     Indication: CHRONIC LYMPHOCYTIC LEUKAEMIA
     Dosage: 400 MG/DAILY/PO
     Route: 048
     Dates: start: 20101108, end: 20101109
  2. CLADRIBINE [Suspect]
     Indication: CHRONIC LYMPHOCYTIC LEUKAEMIA
     Dosage: 9.5 MICROGRAM/1X/IV
     Route: 042
     Dates: start: 20101108, end: 20101110
  3. INJ RITUXIMAB UNK [Suspect]
     Indication: CHRONIC LYMPHOCYTIC LEUKAEMIA
     Dosage: 750 MG /1X/IV
     Route: 042
     Dates: start: 20101110, end: 20101110
  4. PLAVIX [Concomitant]
  5. ZETIA [Concomitant]
  6. ALLOPURINOL [Concomitant]
  7. ASPIRIN [Concomitant]
  8. FENTANYL [Concomitant]
  9. HYDROCHLOROTHIAZIDE (+) LISINOPR [Concomitant]
  10. SIMVASTATIN [Concomitant]

REACTIONS (1)
  - RESPIRATORY FAILURE [None]
